FAERS Safety Report 5004507-8 (Version None)
Quarter: 2006Q2

REPORT INFORMATION
  Report Type: 
  Country: None (occurrence: None)
  Receive Date: 20060517
  Receipt Date: 20060427
  Transmission Date: 20061013
  Serious: Yes (Other)
  Sender: FDA-Public Use
  Company Number: IE-GLAXOSMITHKLINE-B0421697A

PATIENT
  Age: 24 Year
  Sex: Female

DRUGS (1)
  1. AQUAFRESH EXTREME CLEAN WHITENING TOOTHPASTE [Suspect]
     Indication: DENTAL CLEANING
     Dates: start: 20060422, end: 20060422

REACTIONS (2)
  - ANAPHYLACTIC SHOCK [None]
  - PHARMACEUTICAL PRODUCT COMPLAINT [None]
